FAERS Safety Report 12696194 (Version 2)
Quarter: 2016Q3

REPORT INFORMATION
  Report Type: Report from Study
  Country: DK (occurrence: IT)
  Receive Date: 20160829
  Receipt Date: 20160902
  Transmission Date: 20161109
  Serious: Yes (Other)
  Sender: FDA-Public Use
  Company Number: IT-FRI-1000087125

PATIENT
  Age: 58 Year
  Sex: Male

DRUGS (1)
  1. ESCITALOPRAM [Suspect]
     Active Substance: ESCITALOPRAM OXALATE
     Indication: DEPRESSION
     Dosage: 10 MG
     Route: 048
     Dates: start: 20160818, end: 20160820

REACTIONS (3)
  - Nausea [Unknown]
  - Malaise [Unknown]
  - Neck pain [Unknown]

NARRATIVE: CASE EVENT DATE: 20160820
